FAERS Safety Report 19422866 (Version 1)
Quarter: 2021Q2

REPORT INFORMATION
  Report Type: Spontaneous
  Country: US (occurrence: US)
  Receive Date: 20210616
  Receipt Date: 20210616
  Transmission Date: 20210717
  Serious: No
  Sender: FDA-Public Use
  Company Number: None

PATIENT
  Age: 74 Year
  Sex: Female

DRUGS (2)
  1. TARCEVA [Suspect]
     Active Substance: ERLOTINIB HYDROCHLORIDE
     Route: 048
     Dates: start: 202001
  2. ERLOTINIB [Suspect]
     Active Substance: ERLOTINIB

REACTIONS (1)
  - Onychoclasis [None]

NARRATIVE: CASE EVENT DATE: 20210616
